FAERS Safety Report 9402481 (Version 1)
Quarter: 2013Q3

REPORT INFORMATION
  Report Type: Spontaneous
  Country: IT (occurrence: IT)
  Receive Date: 20130716
  Receipt Date: 20130716
  Transmission Date: 20140515
  Serious: Yes (Other)
  Sender: FDA-Public Use
  Company Number: IT-BAYER-2013-085563

PATIENT
  Age: 66 Year
  Sex: Male

DRUGS (8)
  1. SORAFENIB (RAF KINASE INHIBITOR) [Suspect]
     Indication: HEPATOCELLULAR CARCINOMA
     Dosage: 400 MG/DAY
  2. CAPTOPRIL [Concomitant]
     Indication: CONGESTIVE CARDIOMYOPATHY
  3. FUROSEMIDE [Concomitant]
     Indication: CONGESTIVE CARDIOMYOPATHY
  4. CARVEDILOL [Concomitant]
     Indication: CONGESTIVE CARDIOMYOPATHY
  5. AMIODARONE [Concomitant]
     Indication: CONGESTIVE CARDIOMYOPATHY
  6. CLOPIDOGREL [Concomitant]
  7. ATORVASTATIN [Concomitant]
  8. PANTOPRAZOLE [Concomitant]

REACTIONS (8)
  - Asthenia [None]
  - Decreased appetite [None]
  - Diarrhoea [None]
  - Weight decreased [None]
  - Hypertension [None]
  - Hepatic encephalopathy [None]
  - Cardiac failure [None]
  - Cardiac ventricular thrombosis [Recovered/Resolved]
